FAERS Safety Report 14573780 (Version 2)
Quarter: 2018Q1

REPORT INFORMATION
  Report Type: Spontaneous
  Country: US (occurrence: US)
  Receive Date: 20180226
  Receipt Date: 20180306
  Transmission Date: 20180509
  Serious: Yes (Hospitalization, Other)
  Sender: FDA-Public Use
  Company Number: PHHY2018US030913

PATIENT
  Age: 26 Year
  Sex: Male

DRUGS (8)
  1. GABAPENTIN. [Concomitant]
     Active Substance: GABAPENTIN
     Indication: MANIA
     Dosage: 100 MG, TID
     Route: 065
  2. MIRTAZAPINE. [Concomitant]
     Active Substance: MIRTAZAPINE
     Indication: MANIA
     Dosage: 7.5 MG, QHS
     Route: 065
  3. MIRTAZAPINE. [Concomitant]
     Active Substance: MIRTAZAPINE
     Indication: BIPOLAR DISORDER
  4. CARBAMAZEPINE. [Suspect]
     Active Substance: CARBAMAZEPINE
     Indication: MANIA
     Dosage: 200 MG, BID
     Route: 065
  5. CARBAMAZEPINE. [Suspect]
     Active Substance: CARBAMAZEPINE
     Indication: BIPOLAR DISORDER
  6. LITHIUM. [Concomitant]
     Active Substance: LITHIUM
     Indication: MANIA
     Dosage: 900 MG, QHS
     Route: 065
  7. GABAPENTIN. [Concomitant]
     Active Substance: GABAPENTIN
     Indication: BIPOLAR DISORDER
  8. LITHIUM. [Concomitant]
     Active Substance: LITHIUM
     Indication: BIPOLAR DISORDER

REACTIONS (6)
  - Pyrexia [Unknown]
  - Transaminases increased [Recovered/Resolved]
  - Colitis [Recovered/Resolved]
  - Drug reaction with eosinophilia and systemic symptoms [Recovered/Resolved]
  - Abdominal pain [Unknown]
  - Diarrhoea haemorrhagic [Recovered/Resolved]
